FAERS Safety Report 10086804 (Version 3)
Quarter: 2014Q2

REPORT INFORMATION
  Report Type: Spontaneous
  Country: US (occurrence: US)
  Receive Date: 20140418
  Receipt Date: 20140523
  Transmission Date: 20141212
  Serious: Yes (Hospitalization)
  Sender: FDA-Public Use
  Company Number: US-GLAXOSMITHKLINE-A1069281A

PATIENT
  Age: 85 Year
  Sex: Female

DRUGS (13)
  1. ADVAIR DISKUS [Suspect]
     Indication: CHRONIC OBSTRUCTIVE PULMONARY DISEASE
     Dosage: 1PUFF TWICE PER DAY
     Route: 055
     Dates: start: 2009
  2. BREO ELLIPTA [Suspect]
     Indication: CHRONIC OBSTRUCTIVE PULMONARY DISEASE
     Dosage: 1PUFF PER DAY
     Route: 055
     Dates: start: 201404
  3. CPAP MACHINE [Concomitant]
  4. OXYGEN [Concomitant]
  5. COUMADIN [Concomitant]
  6. NOVOLIN 70/30 [Concomitant]
  7. SYNTHROID [Concomitant]
  8. LASIX [Concomitant]
  9. SIMVASTATIN [Concomitant]
  10. UNKNOWN [Concomitant]
  11. LOSARTAN [Concomitant]
  12. VITAMIN [Concomitant]
  13. OXYGEN [Concomitant]

REACTIONS (5)
  - Pneumonia [Recovered/Resolved]
  - Bronchitis chronic [Recovered/Resolved]
  - Dyspnoea [Not Recovered/Not Resolved]
  - Drug ineffective [Unknown]
  - Therapeutic response delayed [Not Recovered/Not Resolved]
